FAERS Safety Report 7829199-1 (Version None)
Quarter: 2011Q4

REPORT INFORMATION
  Report Type: 
  Country: None (occurrence: None)
  Receive Date: 20111020
  Receipt Date: 20111013
  Transmission Date: 20120403
  Serious: Yes (Hospitalization)
  Sender: FDA-Public Use
  Company Number: PHEH2011US07084

PATIENT
  Age: 21 Year
  Sex: Female

DRUGS (2)
  1. PULMOZYME [Concomitant]
  2. TOBI [Suspect]
     Indication: CYSTIC FIBROSIS
     Dosage: 300 MG TWICE DAILY VIA NEBULIZER IN A CYCLE OF , 28 DAYS ON AND 28 DAYS
     Dates: start: 20091008, end: 20110419

REACTIONS (1)
  - UPPER RESPIRATORY TRACT INFECTION [None]
